FAERS Safety Report 18225045 (Version 1)
Quarter: 2020Q3

REPORT INFORMATION
  Report Type: Spontaneous
  Country: US (occurrence: US)
  Receive Date: 20200903
  Receipt Date: 20200903
  Transmission Date: 20201103
  Serious: No
  Sender: FDA-Public Use
  Company Number: US-AMGEN-USASP2020138828

PATIENT
  Age: 34 Year
  Sex: Female
  Weight: 58 kg

DRUGS (1)
  1. MVASI [Suspect]
     Active Substance: BEVACIZUMAB-AWWB
     Indication: PRODUCT USED FOR UNKNOWN INDICATION
     Dosage: OTAL DOSE IS 291 MG
     Route: 065

REACTIONS (2)
  - Device breakage [Unknown]
  - Accident [Unknown]

NARRATIVE: CASE EVENT DATE: 202007
